FAERS Safety Report 6081829-3 (Version None)
Quarter: 2009Q1

REPORT INFORMATION
  Report Type: 
  Country: None (occurrence: None)
  Receive Date: 20090218
  Receipt Date: 20080306
  Transmission Date: 20090719
  Serious: No
  Sender: FDA-Public Use
  Company Number: US-BRISTOL-MYERS SQUIBB COMPANY-14104988

PATIENT
  Age: 49 Year
  Sex: Female

DRUGS (4)
  1. METFORMIN HCL [Suspect]
     Indication: TYPE 2 DIABETES MELLITUS
     Dates: end: 20080204
  2. LANTUS [Suspect]
     Indication: TYPE 2 DIABETES MELLITUS
     Dosage: INCREASED TO 40 UNITS AT BEDTIME AND THEN DISCONTINUED ON 04-FEB-2008.
     Dates: end: 20080204
  3. AVANDIA [Suspect]
     Indication: TYPE 2 DIABETES MELLITUS
     Dosage: STOPPED ON 04FEB08
     Dates: end: 20080204
  4. NOVOLOG [Suspect]
     Indication: TYPE 2 DIABETES MELLITUS
     Dosage: STOPPED ON 04FEB08
     Dates: end: 20080204

REACTIONS (1)
  - BLOOD GLUCOSE FLUCTUATION [None]
